FAERS Safety Report 7964780-0 (Version None)
Quarter: 2011Q4

REPORT INFORMATION
  Report Type: 
  Country: None (occurrence: None)
  Receive Date: 20111208
  Receipt Date: 20111130
  Transmission Date: 20120403
  Serious: Yes (Hospitalization)
  Sender: FDA-Public Use
  Company Number: FR-SANOFI-AVENTIS-2011SA078579

PATIENT
  Age: 88 Year
  Sex: Male

DRUGS (7)
  1. PREVISCAN [Suspect]
     Dosage: IN THE EVENING
     Route: 048
     Dates: end: 20110730
  2. ATARAX [Concomitant]
     Indication: ANXIETY
     Route: 048
     Dates: start: 20110728
  3. LASIX [Suspect]
     Route: 048
     Dates: start: 20110315, end: 20110815
  4. FORLAX [Suspect]
     Indication: CONSTIPATION
     Route: 048
     Dates: start: 20110705, end: 20110815
  5. POTASSIUM CHLORIDE [Concomitant]
     Indication: HYPOKALAEMIA
     Route: 048
     Dates: start: 20110315
  6. DILTIAZEM HCL [Concomitant]
     Route: 048
     Dates: start: 20110705
  7. LORMETAZEPAM [Concomitant]
     Indication: INSOMNIA
     Route: 048
     Dates: start: 20110728

REACTIONS (1)
  - HAEMATOMA [None]
